FAERS Safety Report 18548911 (Version 4)
Quarter: 2021Q1

REPORT INFORMATION
  Report Type: Spontaneous
  Country: PT (occurrence: PT)
  Receive Date: 20201126
  Receipt Date: 20210323
  Transmission Date: 20210419
  Serious: Yes (Other)
  Sender: FDA-Public Use
  Company Number: PT-BIOVITRUM-2020PT6634

PATIENT
  Age: 43 Year
  Sex: Female
  Weight: 73 kg

DRUGS (4)
  1. BILASTINE [Concomitant]
     Active Substance: BILASTINE
     Route: 048
  2. BILAXTEN [Concomitant]
     Active Substance: BILASTINE
     Route: 048
  3. VITAMIN D [Concomitant]
     Active Substance: VITAMIN D NOS
  4. KINERET [Suspect]
     Active Substance: ANAKINRA
     Indication: AUTOINFLAMMATORY DISEASE
     Dosage: 100 MG
     Route: 058
     Dates: start: 20201013

REACTIONS (4)
  - Angioedema [Recovered/Resolved]
  - Eye pruritus [Recovered/Resolved]
  - Injection site hypersensitivity [Recovered/Resolved]
  - Off label use [Not Recovered/Not Resolved]

NARRATIVE: CASE EVENT DATE: 20201013
